FAERS Safety Report 8274025-2 (Version None)
Quarter: 2012Q2

REPORT INFORMATION
  Report Type: 
  Country: None (occurrence: None)
  Receive Date: 20120411
  Receipt Date: 20120328
  Transmission Date: 20120825
  Serious: Yes (Hospitalization)
  Sender: FDA-Public Use
  Company Number: PHHO2012JP005047

PATIENT
  Sex: Female
  Weight: 54 kg

DRUGS (10)
  1. DIOVAN [Suspect]
     Indication: HYPERTENSION
     Dosage: 80 MG, UNK
     Route: 048
  2. KENALOG [Concomitant]
     Indication: STOMATITIS
     Dosage: UNK
  3. SODIUM CHLORIDE SOLUTION [Concomitant]
     Route: 042
  4. INC424 [Suspect]
     Indication: MYELOFIBROSIS
     Dosage: 30 MG, UNK
     Route: 048
     Dates: start: 20110822, end: 20120206
  5. UREPEARL [Concomitant]
     Indication: DERMATITIS
     Dosage: UNK
  6. VERAPAMIL HCL [Concomitant]
     Route: 042
  7. ISOZOL [Concomitant]
     Route: 042
  8. ALDACTONE [Concomitant]
     Route: 048
  9. INC424 [Suspect]
     Dosage: 10 MG, UNK
     Route: 048
     Dates: start: 20120213, end: 20120307
  10. LASIX [Concomitant]
     Route: 048

REACTIONS (1)
  - CARDIAC FAILURE [None]
